FAERS Safety Report 15059820 (Version 2)
Quarter: 2018Q3

REPORT INFORMATION
  Report Type: Spontaneous
  Country: US (occurrence: US)
  Receive Date: 20180625
  Receipt Date: 20180827
  Transmission Date: 20181010
  Serious: Yes (Other)
  Sender: FDA-Public Use
  Company Number: US-SA-2018SA160924

PATIENT
  Sex: Female
  Weight: 67.6 kg

DRUGS (10)
  1. WELLBUTRIN [Concomitant]
     Active Substance: BUPROPION HYDROCHLORIDE
  2. LORAZEPAM. [Concomitant]
     Active Substance: LORAZEPAM
  3. TAXOTERE [Suspect]
     Active Substance: DOCETAXEL
     Indication: BREAST CANCER FEMALE
     Dosage: 170 MG
     Route: 042
     Dates: start: 20100921, end: 20100921
  4. FOLIC ACID. [Suspect]
     Active Substance: FOLIC ACID
  5. LISINOPRIL. [Concomitant]
     Active Substance: LISINOPRIL
  6. LAMICTAL [Concomitant]
     Active Substance: LAMOTRIGINE
  7. CYTOXAN [Concomitant]
     Active Substance: CYCLOPHOSPHAMIDE
  8. ELLENCE [Concomitant]
     Active Substance: EPIRUBICIN HYDROCHLORIDE
  9. NEOSAR [Concomitant]
     Active Substance: CYCLOPHOSPHAMIDE
  10. TAXOL [Concomitant]
     Active Substance: PACLITAXEL

REACTIONS (2)
  - Alopecia [Recovering/Resolving]
  - Psychological trauma [Unknown]

NARRATIVE: CASE EVENT DATE: 201006
